FAERS Safety Report 15246924 (Version 1)
Quarter: 2018Q3

REPORT INFORMATION
  Report Type: Spontaneous
  Country: US (occurrence: US)
  Receive Date: 20180804
  Receipt Date: 20180804
  Transmission Date: 20181010
  Serious: No
  Sender: FDA-Public Use
  Company Number: None

PATIENT
  Sex: Female

DRUGS (3)
  1. FIT BODY HCG DROPS SUPPLEMENT [Suspect]
     Active Substance: DIETARY SUPPLEMENT\HOMEOPATHICS
     Indication: WEIGHT DECREASED
     Dosage: ?          QUANTITY:0.5 DROP(S);?
     Route: 060
  2. FIT BODY HCG DROPS SUPPLEMENT [Suspect]
     Active Substance: DIETARY SUPPLEMENT\HOMEOPATHICS
     Indication: IMMUNODEFICIENCY
     Dosage: ?          QUANTITY:0.5 DROP(S);?
     Route: 060
  3. FIT BODY HCG DROPS SUPPLEMENT [Suspect]
     Active Substance: DIETARY SUPPLEMENT\HOMEOPATHICS
     Indication: STRESS
     Dosage: ?          QUANTITY:0.5 DROP(S);?
     Route: 060

REACTIONS (2)
  - Malaise [None]
  - Abdominal distension [None]
